FAERS Safety Report 9866180 (Version 2)
Quarter: 2014Q1

REPORT INFORMATION
  Report Type: Spontaneous
  Country: US (occurrence: US)
  Receive Date: 20140203
  Receipt Date: 20140203
  Transmission Date: 20141002
  Serious: No
  Sender: FDA-Public Use
  Company Number: US-ALLERGAN-1317305US

PATIENT
  Age: 53 Year
  Sex: Female

DRUGS (5)
  1. RESTASIS [Suspect]
     Indication: DRY EYE
     Dosage: 2 GTT, BID
     Route: 047
     Dates: start: 2011
  2. RESTASIS [Suspect]
     Dosage: UNK
  3. SALINE EYE DROPS NOS [Concomitant]
     Indication: DRY EYE
     Dosage: UNK
     Route: 047
  4. ESCITALOPRAM [Concomitant]
     Indication: ANXIETY
     Dosage: 10 MG, QD
     Route: 048
  5. MUCOMYST                           /00082801/ [Concomitant]
     Indication: SINUS DISORDER
     Dosage: UNK

REACTIONS (2)
  - Therapeutic response unexpected [Unknown]
  - Instillation site pain [Recovered/Resolved]
